FAERS Safety Report 22388028 (Version 2)
Quarter: 2024Q3

REPORT INFORMATION
  Report Type: Spontaneous
  Country: CN (occurrence: CN)
  Receive Date: 20230531
  Receipt Date: 20240824
  Transmission Date: 20241017
  Serious: Yes (Hospitalization)
  Sender: ROCHE
  Company Number: CN-ROCHE-3353079

PATIENT
  Age: 55 Year
  Sex: Male

DRUGS (6)
  1. MYCOPHENOLATE MOFETIL [Suspect]
     Active Substance: MYCOPHENOLATE MOFETIL
     Indication: Prophylaxis against transplant rejection
     Route: 048
  2. MYCOPHENOLATE MOFETIL [Suspect]
     Active Substance: MYCOPHENOLATE MOFETIL
     Route: 048
  3. TACROLIMUS [Suspect]
     Active Substance: TACROLIMUS
     Indication: Prophylaxis against transplant rejection
     Route: 048
  4. SIROLIMUS [Suspect]
     Active Substance: SIROLIMUS
     Indication: Prophylaxis against transplant rejection
     Route: 048
  5. NOREPINEPHRINE [Concomitant]
     Active Substance: NOREPINEPHRINE\NOREPINEPHRINE BITARTRATE
     Dosage: 4UG/KG/MIN
  6. PHOSPHOLIPID [Concomitant]
     Active Substance: PHOSPHOLIPID

REACTIONS (5)
  - Renal impairment [Recovered/Resolved]
  - Hepatic function abnormal [Recovered/Resolved]
  - Septic shock [Recovered/Resolved]
  - Biliary tract infection cryptosporidial [Recovered/Resolved]
  - Multiple organ dysfunction syndrome [Recovered/Resolved]
